FAERS Safety Report 24681649 (Version 1)
Quarter: 2024Q4

REPORT INFORMATION
  Report Type: Spontaneous
  Country: RU (occurrence: RU)
  Receive Date: 20241130
  Receipt Date: 20241130
  Transmission Date: 20250114
  Serious: Yes (Hospitalization)
  Sender: ABBVIE
  Company Number: RU-ABBVIE-6023139

PATIENT
  Sex: Female

DRUGS (4)
  1. HUMIRA [Suspect]
     Active Substance: ADALIMUMAB
     Indication: Product used for unknown indication
     Dosage: IRREGULAR INTAKE
     Route: 058
     Dates: start: 202311, end: 202404
  2. HUMIRA [Suspect]
     Active Substance: ADALIMUMAB
     Route: 058
     Dates: start: 202404
  3. Alfa Normix (Rifaximin) [Concomitant]
     Indication: Product used for unknown indication
     Route: 048
     Dates: start: 2024
  4. Trimedat (Trimebutine) [Concomitant]
     Indication: Product used for unknown indication
     Route: 065
     Dates: start: 2024

REACTIONS (4)
  - Constipation [Unknown]
  - Inappropriate schedule of product administration [Recovered/Resolved]
  - Abdominal pain [Not Recovered/Not Resolved]
  - Peritonitis [Unknown]

NARRATIVE: CASE EVENT DATE: 20241101
